FAERS Safety Report 12277192 (Version 2)
Quarter: 2016Q4

REPORT INFORMATION
  Report Type: Spontaneous
  Country: US (occurrence: US)
  Receive Date: 20160418
  Receipt Date: 20161011
  Transmission Date: 20170207
  Serious: No
  Sender: FDA-Public Use
  Company Number: US-TEVA-633693USA

PATIENT
  Age: 35 Year
  Sex: Female

DRUGS (1)
  1. ZECUITY [Suspect]
     Active Substance: SUMATRIPTAN SUCCINATE
     Indication: MIGRAINE
     Route: 062
     Dates: start: 20160203, end: 20160203

REACTIONS (9)
  - Product adhesion issue [Unknown]
  - Application site erythema [Recovered/Resolved]
  - Application site discolouration [Recovered/Resolved]
  - Incorrect drug administration duration [Unknown]
  - Application site pruritus [Recovered/Resolved]
  - Application site irritation [Recovered/Resolved]
  - Product leakage [Unknown]
  - Application site bruise [Recovered/Resolved]
  - Drug effect incomplete [Unknown]

NARRATIVE: CASE EVENT DATE: 20160203
